FAERS Safety Report 4901968-7 (Version None)
Quarter: 2006Q1

REPORT INFORMATION
  Report Type: 
  Country: None (occurrence: None)
  Receive Date: 20060201
  Receipt Date: 20060201
  Transmission Date: 20060701
  Serious: Yes (Other)
  Sender: FDA-Public Use
  Company Number: None

PATIENT
  Age: 7 Year

DRUGS (7)
  1. CLONAZEPAM [Suspect]
     Indication: CONVULSION
     Dosage: 2 PO BID
     Route: 048
  2. DIAZEPAM [Concomitant]
  3. NAPROSYN [Concomitant]
  4. DIASTAT [Concomitant]
  5. MIRALOX [Concomitant]
  6. OPTILUBE/NATURAL TEARS [Concomitant]
  7. LUPRON DEPOT [Concomitant]

REACTIONS (1)
  - CONVULSION [None]
